FAERS Safety Report 20206583 (Version 2)
Quarter: 2021Q4

REPORT INFORMATION
  Report Type: Report from Study
  Country: AT (occurrence: AT)
  Receive Date: 20211220
  Receipt Date: 20211230
  Transmission Date: 20220303
  Serious: Yes (Other)
  Sender: FDA-Public Use
  Company Number: AT-ROCHE-2726741

PATIENT
  Age: 58 Year
  Sex: Female
  Weight: 44 kg

DRUGS (20)
  1. TRASTUZUMAB [Suspect]
     Active Substance: TRASTUZUMAB
     Indication: HER2 positive breast cancer
     Dosage: 6 MG/M2, Q3W (MOST RECENT DOSE PRIOR TO THE EVENT: 12/OCT/2017; 19/SEP/2019)
     Route: 041
     Dates: start: 20170810, end: 20171012
  2. TRASTUZUMAB [Suspect]
     Active Substance: TRASTUZUMAB
     Dosage: 600 MILLIGRAM
     Route: 058
     Dates: start: 20190919
  3. PACLITAXEL [Suspect]
     Active Substance: PACLITAXEL
     Indication: HER2 positive breast cancer
     Dosage: 125 MILLIGRAM/SQ. METER (173MG)
     Route: 042
     Dates: start: 20200401
  4. VINORELBINE [Suspect]
     Active Substance: VINORELBINE TARTRATE
     Indication: HER2 positive breast cancer
     Dosage: 25 MG/M2, Q3W (MOST RECENT DOSE WAS RECEIVED ON 12/OCT/2017)
     Route: 042
     Dates: start: 20170810
  5. CAPECITABINE [Suspect]
     Active Substance: CAPECITABINE
     Indication: HER2 positive breast cancer
     Dosage: 1500 MILLIGRAM
     Route: 048
     Dates: start: 20190919, end: 20200325
  6. PERTUZUMAB [Suspect]
     Active Substance: PERTUZUMAB
     Indication: HER2 positive breast cancer
     Dosage: 420 MG, Q3W (MOST RECENT DOSE WAS RECEIVED ON 12/OCT/2017)
     Route: 042
     Dates: start: 20170810
  7. ADO-TRASTUZUMAB EMTANSINE [Suspect]
     Active Substance: ADO-TRASTUZUMAB EMTANSINE
     Indication: HER2 positive breast cancer
     Dosage: 3.6 MG/KG, Q3W (MOST RECENT DOSE WAS RECEIVED ON 24/JUL/2019)
     Route: 042
     Dates: start: 20171108
  8. DENOSUMAB [Suspect]
     Active Substance: DENOSUMAB
     Indication: HER2 positive breast cancer
     Dosage: 120 MILLIGRAM, Q28D
     Route: 058
     Dates: start: 20170516
  9. LEVOTHYROXINE SODIUM [Concomitant]
     Active Substance: LEVOTHYROXINE SODIUM
     Dosage: UNK
  10. LEVOTHYROXINE SODIUM [Concomitant]
     Active Substance: LEVOTHYROXINE SODIUM
     Dosage: 75 MILLIGRAM
     Route: 048
  11. HYDROMORPHONE HYDROCHLORIDE [Concomitant]
     Active Substance: HYDROMORPHONE HYDROCHLORIDE
     Indication: Pain
     Dosage: UNK
  12. HYDROMORPHONE HYDROCHLORIDE [Concomitant]
     Active Substance: HYDROMORPHONE HYDROCHLORIDE
     Dosage: 2 MILLIGRAM
     Route: 048
  13. MEFENAMIC ACID [Concomitant]
     Active Substance: MEFENAMIC ACID
     Indication: Pain
     Dosage: UNK
  14. MEFENAMIC ACID [Concomitant]
     Active Substance: MEFENAMIC ACID
     Dosage: 500 MILLIGRAM
     Route: 048
  15. METAMIZOLE [Concomitant]
     Active Substance: METAMIZOLE
     Indication: Pain
     Dosage: 500 MILLIGRAM
  16. LEVETIRACETAM [Concomitant]
     Active Substance: LEVETIRACETAM
     Indication: Epilepsy
     Dosage: 500 MILLIGRAM
     Route: 048
     Dates: start: 20210615
  17. LEVETIRACETAM [Concomitant]
     Active Substance: LEVETIRACETAM
     Dosage: UNK
     Dates: start: 20210606, end: 20210606
  18. LEVETIRACETAM [Concomitant]
     Active Substance: LEVETIRACETAM
     Dosage: 1000 MILLIGRAM
     Dates: start: 20210709, end: 20210709
  19. DEXAMETHASONE [Concomitant]
     Active Substance: DEXAMETHASONE
     Dosage: 2 MILLIGRAM, QD
     Route: 048
     Dates: start: 20210625, end: 20210731
  20. DEXAMETHASONE [Concomitant]
     Active Substance: DEXAMETHASONE
     Dosage: 4 MILLIGRAM, QD
     Route: 048
     Dates: start: 20201217, end: 20210724

REACTIONS (2)
  - Polyneuropathy [Not Recovered/Not Resolved]
  - Arthralgia [Recovered/Resolved]

NARRATIVE: CASE EVENT DATE: 20200513
